FAERS Safety Report 22280638 (Version 1)
Quarter: 2023Q2

REPORT INFORMATION
  Report Type: Spontaneous
  Country: US (occurrence: None)
  Receive Date: 20230502
  Receipt Date: 20230502
  Transmission Date: 20230721
  Serious: Yes (Other)
  Sender: FDA-Public Use
  Company Number: None

PATIENT
  Age: 59 Year
  Sex: Female
  Weight: 69.9 kg

DRUGS (2)
  1. DAPTOMYCIN [Suspect]
     Active Substance: DAPTOMYCIN
     Indication: Staphylococcal infection
     Dosage: FREQUENCY : DAILY;?
     Route: 040
     Dates: start: 20221227, end: 20230105
  2. MEROPENEM [Concomitant]
     Active Substance: MEROPENEM
     Dates: start: 20221227, end: 20230105

REACTIONS (5)
  - Rash macular [None]
  - Skin exfoliation [None]
  - Therapy interrupted [None]
  - Erythema [None]
  - Pruritus [None]

NARRATIVE: CASE EVENT DATE: 20230105
